FAERS Safety Report 7889849-0 (Version None)
Quarter: 2011Q4

REPORT INFORMATION
  Report Type: 
  Country: None (occurrence: None)
  Receive Date: 20111103
  Receipt Date: 20111102
  Transmission Date: 20120403
  Serious: Yes (Other)
  Sender: FDA-Public Use
  Company Number: US-GLAXOSMITHKLINE-A0948553A

PATIENT
  Age: 57 Year
  Sex: Male

DRUGS (4)
  1. NEUPOGEN [Concomitant]
  2. UNKNOWN [Concomitant]
  3. ALDACTONE [Concomitant]
  4. PROMACTA [Suspect]
     Indication: HEPATIC CIRRHOSIS
     Route: 048
     Dates: start: 20110511

REACTIONS (4)
  - ABDOMINAL PAIN [None]
  - WEIGHT DECREASED [None]
  - HEPATOSPLENOMEGALY [None]
  - HEPATIC NEOPLASM MALIGNANT [None]
